FAERS Safety Report 18732543 (Version 2)
Quarter: 2021Q3

REPORT INFORMATION
  Report Type: Spontaneous
  Country: US (occurrence: US)
  Receive Date: 20210112
  Receipt Date: 20210720
  Transmission Date: 20211014
  Serious: Yes (Hospitalization, Other)
  Sender: FDA-Public Use
  Company Number: US-PERRIGO-20US018840

PATIENT
  Age: 67 Year
  Sex: Male

DRUGS (5)
  1. PRILOSEC [Suspect]
     Active Substance: OMEPRAZOLE MAGNESIUM
     Indication: GASTROOESOPHAGEAL REFLUX DISEASE
     Dosage: 20 MG, QD, PRN
     Route: 048
     Dates: start: 1991, end: 201606
  2. PREVACID [Suspect]
     Active Substance: LANSOPRAZOLE
     Indication: GASTROOESOPHAGEAL REFLUX DISEASE
     Dosage: 20 MG, QD, PRN
     Route: 048
     Dates: start: 1996, end: 200905
  3. OMEPRAZOLE                         /00661202/ [Suspect]
     Active Substance: OMEPRAZOLE SODIUM
     Indication: GASTROOESOPHAGEAL REFLUX DISEASE
     Dosage: 20 MG, QD, PRN
     Route: 048
     Dates: start: 1982, end: 20180725
  4. NEXIUM 24HR [Suspect]
     Active Substance: ESOMEPRAZOLE MAGNESIUM
     Indication: GASTROOESOPHAGEAL REFLUX DISEASE
     Dosage: 20 MG, QD, PRN
     Route: 048
     Dates: start: 2001, end: 2006
  5. PREVACID 24 HR [Suspect]
     Active Substance: LANSOPRAZOLE
     Indication: GASTROOESOPHAGEAL REFLUX DISEASE
     Dosage: 20 MG, QD, PRN
     Route: 048
     Dates: start: 20090518, end: 2016

REACTIONS (22)
  - Dysuria [Unknown]
  - Pollakiuria [Unknown]
  - Nocturia [Unknown]
  - Ureteric stenosis [Unknown]
  - Focal segmental glomerulosclerosis [Unknown]
  - Micturition urgency [Unknown]
  - Nephropathy [Unknown]
  - Urinary retention [Unknown]
  - Haemodialysis [Unknown]
  - Renal failure [Unknown]
  - Chronic kidney disease [Recovered/Resolved]
  - Renal artery stenosis [Unknown]
  - Kidney small [Unknown]
  - Dialysis [Recovered/Resolved]
  - Proteinuria [Unknown]
  - Glomerulosclerosis [Unknown]
  - Peritoneal dialysis [Unknown]
  - End stage renal disease [Recovered/Resolved]
  - Renal disorder [Unknown]
  - Renal transplant [Recovered/Resolved]
  - Urinary tract obstruction [Unknown]
  - Renal cyst [Unknown]

NARRATIVE: CASE EVENT DATE: 2013
